FAERS Safety Report 4787486-8 (Version None)
Quarter: 2005Q4

REPORT INFORMATION
  Report Type: 
  Country: None (occurrence: None)
  Receive Date: 20051004
  Receipt Date: 20050930
  Transmission Date: 20060501
  Serious: Yes (Death, Hospitalization)
  Sender: FDA-Public Use
  Company Number: FR-BRISTOL-MYERS SQUIBB COMPANY-13129754

PATIENT
  Age: 54 Year
  Sex: Male

DRUGS (17)
  1. VINFLUNINE IV [Suspect]
     Indication: NON-SMALL CELL LUNG CANCER
     Dosage: DOSE 280 MG/M2 (440 MG) ON DAY 1 EVERY 3 WEEKS.
     Route: 042
     Dates: start: 20020523, end: 20020725
  2. CISPLATIN [Suspect]
     Indication: NON-SMALL CELL LUNG CANCER
     Route: 042
     Dates: start: 20020523, end: 20020725
  3. CARBOPLATIN [Suspect]
     Dates: start: 20020814, end: 20020814
  4. PACLITAXEL [Suspect]
     Dates: start: 20020814, end: 20020814
  5. SKENAN [Concomitant]
  6. BI-PROFENID [Concomitant]
  7. SEVREDOL [Concomitant]
  8. OMEPRAZOLE [Concomitant]
  9. AMITRIPTYLINE HCL [Concomitant]
  10. MEDROL [Concomitant]
  11. SURBRONC [Concomitant]
  12. TARDYFERON [Concomitant]
  13. XANAX [Concomitant]
  14. EFFERALGAN CODEINE [Concomitant]
  15. BRONCHODUAL [Concomitant]
  16. SERETIDE [Concomitant]
  17. LYTOS [Concomitant]

REACTIONS (3)
  - ACUTE RESPIRATORY FAILURE [None]
  - MALIGNANT NEOPLASM PROGRESSION [None]
  - MYOCARDIAL INFARCTION [None]
